FAERS Safety Report 10914160 (Version 1)
Quarter: 2015Q1

REPORT INFORMATION
  Report Type: Spontaneous
  Country: US (occurrence: US)
  Receive Date: 20150313
  Receipt Date: 20150313
  Transmission Date: 20150721
  Serious: Yes (Hospitalization, Other)
  Sender: FDA-Public Use
  Company Number: US-ELI_LILLY_AND_COMPANY-US201503003316

PATIENT
  Age: 80 Year
  Sex: Female

DRUGS (7)
  1. IMDUR [Concomitant]
     Active Substance: ISOSORBIDE MONONITRATE
  2. LASIX [Concomitant]
     Active Substance: FUROSEMIDE
  3. LIPITOR [Concomitant]
     Active Substance: ATORVASTATIN CALCIUM
  4. HUMULIN 70/30 [Suspect]
     Active Substance: INSULIN HUMAN
     Dosage: 60 U, BID
     Route: 065
  5. METOPROLOL [Concomitant]
     Active Substance: METOPROLOL
  6. LEVOTHYROXINE [Concomitant]
     Active Substance: LEVOTHYROXINE
  7. HUMULIN 70/30 [Suspect]
     Active Substance: INSULIN HUMAN
     Indication: TYPE 2 DIABETES MELLITUS
     Dosage: 60 U, BID
     Route: 065

REACTIONS (9)
  - Constipation [Unknown]
  - Glycosylated haemoglobin increased [Unknown]
  - Dizziness [Unknown]
  - Product quality issue [None]
  - Large intestine polyp [Unknown]
  - Thrombosis [Unknown]
  - Drug ineffective [Unknown]
  - Intestinal haemorrhage [Recovered/Resolved]
  - Blood glucose increased [Unknown]

NARRATIVE: CASE EVENT DATE: 201407
